FAERS Safety Report 10534024 (Version 1)
Quarter: 2014Q4

REPORT INFORMATION
  Report Type: Report from Study
  Country: US (occurrence: US)
  Receive Date: 20141022
  Receipt Date: 20141022
  Transmission Date: 20150529
  Serious: Yes (Hospitalization)
  Sender: FDA-Public Use
  Company Number: PHEH2014US020473

PATIENT
  Age: 60 Year
  Sex: Female

DRUGS (7)
  1. VALIUM [Suspect]
     Active Substance: DIAZEPAM
     Dosage: 10 MG, UP TO 3 X DAILY
  2. TRAMADOL [Suspect]
     Active Substance: TRAMADOL
     Dosage: 50 MG, UNK
  3. ATARAX [Suspect]
     Active Substance: HYDROXYZINE\HYDROXYZINE HYDROCHLORIDE
     Dosage: 25 MG, QD
  4. ELAVIL [Suspect]
     Active Substance: AMITRIPTYLINE HYDROCHLORIDE
     Dosage: 100 MG, QD
  5. PRILOSEC [Suspect]
     Active Substance: OMEPRAZOLE MAGNESIUM
     Dosage: 20 MG, BID
  6. BACLOFEN. [Suspect]
     Active Substance: BACLOFEN
     Dosage: 20 MG, TID
  7. GILENYA [Suspect]
     Active Substance: FINGOLIMOD HYDROCHLORIDE
     Indication: MULTIPLE SCLEROSIS
     Dosage: 0.5 MG, QD
     Route: 048
     Dates: start: 20131204

REACTIONS (1)
  - Perforated ulcer [Recovered/Resolved]

NARRATIVE: CASE EVENT DATE: 20140513
